FAERS Safety Report 5669592-9 (Version None)
Quarter: 2008Q1

REPORT INFORMATION
  Report Type: 
  Country: None (occurrence: None)
  Receive Date: 20080317
  Receipt Date: 20080303
  Transmission Date: 20080703
  Serious: Yes (Hospitalization, Other)
  Sender: FDA-Public Use
  Company Number: AU-AMGEN-US267969

PATIENT
  Sex: Female

DRUGS (4)
  1. PANITUMUMAB [Suspect]
     Indication: COLORECTAL CANCER
     Route: 042
     Dates: start: 20071127
  2. IRINOTECAN HCL [Concomitant]
  3. FLUOROURACIL [Concomitant]
  4. FOLINIC ACID [Concomitant]

REACTIONS (1)
  - PAIN [None]
